FAERS Safety Report 18247603 (Version 1)
Quarter: 2020Q3

REPORT INFORMATION
  Report Type: Spontaneous
  Country: GB (occurrence: GB)
  Receive Date: 20200909
  Receipt Date: 20200909
  Transmission Date: 20201103
  Serious: Yes (Other)
  Sender: FDA-Public Use
  Company Number: GB-TEVA-2020-GB-1824450

PATIENT
  Age: 79 Year
  Sex: Male
  Weight: 96.59 kg

DRUGS (15)
  1. PARACETAMOL [Concomitant]
     Active Substance: ACETAMINOPHEN
     Dosage: 1 OR 2 TABLETS UP TO 4 TIMES A DAY
     Dates: start: 20200727
  2. PHYLLOCONTIN [Concomitant]
     Active Substance: AMINOPHYLLINE
     Dosage: 450 MG
     Dates: start: 20200622
  3. VENTOLIN [Concomitant]
     Active Substance: ALBUTEROL SULFATE
     Dosage: 200 MCG
     Route: 055
     Dates: start: 20200622
  4. CANDESARTAN. [Concomitant]
     Active Substance: CANDESARTAN
     Dosage: 16 MG
     Dates: start: 20200622
  5. ADIZEM [Concomitant]
     Active Substance: DILTIAZEM HYDROCHLORIDE
     Dosage: 180 MG
     Dates: start: 20200622
  6. APIXABAN [Concomitant]
     Active Substance: APIXABAN
     Dosage: 10 MG
     Dates: start: 20200605
  7. TIMODINE [Concomitant]
     Dosage: 1  DOSAGE FORMS ,UP TO TWICE DAILY
     Dates: start: 20200727
  8. LEVETIRACETAM. [Suspect]
     Active Substance: LEVETIRACETAM
     Dosage: 250 MG
     Route: 048
  9. COLCHICINE. [Concomitant]
     Active Substance: COLCHICINE
     Dosage: 1000 MCG
     Dates: start: 20200707
  10. AZITHROMYCIN ANHYDROUS. [Concomitant]
     Active Substance: AZITHROMYCIN ANHYDROUS
     Dosage: 750 MG
     Dates: start: 20200622
  11. MEBEVERINE [Concomitant]
     Active Substance: MEBEVERINE
     Dosage: 135 MG ,UP TO 3 TIMES A DAY
     Dates: start: 20200723
  12. SEREFLO [Concomitant]
     Active Substance: FLUTICASONE PROPIONATE\SALMETEROL XINAFOATE
     Dosage: 4 DOSAGE FORMS ,PUFFS, 25MICROGRAMS/DOSE / 125MICROGRAMS/DOSE
     Dates: start: 20200527, end: 20200702
  13. METFORMIN [Concomitant]
     Active Substance: METFORMIN HYDROCHLORIDE
     Dosage: 500 MG
     Dates: start: 20200507, end: 20200527
  14. SIMVASTATIN. [Concomitant]
     Active Substance: SIMVASTATIN
     Dosage: 20 MILLIGRAM DAILY; AT NIGHT
     Dates: start: 20200622
  15. OMEPRAZOLE. [Concomitant]
     Active Substance: OMEPRAZOLE
     Dosage: 20 MG
     Dates: start: 20200527, end: 20200731

REACTIONS (4)
  - Lethargy [Unknown]
  - Major depression [Recovering/Resolving]
  - Headache [Unknown]
  - Gait disturbance [Unknown]

NARRATIVE: CASE EVENT DATE: 20200727
